FAERS Safety Report 5562779-5 (Version None)
Quarter: 2007Q4

REPORT INFORMATION
  Report Type: 
  Country: None (occurrence: None)
  Receive Date: 20071217
  Receipt Date: 20071206
  Transmission Date: 20080405
  Serious: Yes (Other)
  Sender: FDA-Public Use
  Company Number: JP-NOVOPROD-269680

PATIENT
  Sex: Female

DRUGS (1)
  1. PENFILL 30R CHU [Suspect]
     Indication: NEONATAL DIABETES MELLITUS

REACTIONS (2)
  - HYPOGLYCAEMIA [None]
  - NEONATAL DIABETES MELLITUS [None]
